FAERS Safety Report 9931462 (Version 2)
Quarter: 2014Q2

REPORT INFORMATION
  Report Type: Spontaneous
  Country: US (occurrence: US)
  Receive Date: 20140228
  Receipt Date: 20140403
  Transmission Date: 20141212
  Serious: Yes (Other)
  Sender: FDA-Public Use
  Company Number: US-BEH-2014040776

PATIENT
  Sex: Female
  Weight: 56 kg

DRUGS (14)
  1. PRIVIGEN [Suspect]
     Indication: HYPOGAMMAGLOBULINAEMIA
     Route: 042
  2. PRIVIGEN [Suspect]
     Route: 042
  3. PRIVIGEN [Suspect]
     Route: 042
  4. PRIVIGEN [Suspect]
     Route: 042
  5. CYMBALTA [Concomitant]
  6. FORTEO [Concomitant]
  7. NASONEX [Concomitant]
  8. HYDROCHLOROTHIAZIDE [Concomitant]
  9. BACLOFEN [Concomitant]
  10. IMITREX [Concomitant]
  11. KLOR-CON [Concomitant]
  12. AMITIZA [Concomitant]
  13. PERCOCET [Concomitant]
  14. VITAMIN D3 [Concomitant]

REACTIONS (3)
  - Thyrotoxic crisis [Unknown]
  - Viral infection [Unknown]
  - Nausea [Unknown]
